FAERS Safety Report 7282325-8 (Version None)
Quarter: 2011Q1

REPORT INFORMATION
  Report Type: 
  Country: None (occurrence: None)
  Receive Date: 20110209
  Receipt Date: 20110202
  Transmission Date: 20110831
  Serious: Yes (Hospitalization)
  Sender: FDA-Public Use
  Company Number: JP-PFIZER INC-2011024326

PATIENT
  Age: 61 Year
  Sex: Male

DRUGS (6)
  1. ACTOS [Concomitant]
     Dosage: 45 MG, A DAY
     Route: 048
  2. CADUET [Suspect]
     Dosage: UNK
     Route: 048
     Dates: start: 20101201, end: 20110106
  3. MELBIN [Concomitant]
     Dosage: 750 MG, A DAY
     Route: 048
  4. KINEDAK [Concomitant]
     Dosage: 150 MG, A DAY
     Route: 048
  5. AMARYL [Concomitant]
     Dosage: 3 MG, A DAY
     Route: 048
  6. SITAGLIPTIN PHOSPHATE [Concomitant]
     Dosage: 100 MG, A DAY
     Route: 048

REACTIONS (4)
  - MYOGLOBIN BLOOD INCREASED [None]
  - BLOOD CREATINE PHOSPHOKINASE INCREASED [None]
  - MYOGLOBIN URINE PRESENT [None]
  - ASTHENIA [None]
